FAERS Safety Report 8962839 (Version 1)
Quarter: 2012Q4

REPORT INFORMATION
  Report Type: 
  Country: CA (occurrence: CA)
  Receive Date: 20121214
  Receipt Date: 20121214
  Transmission Date: 20130627
  Serious: Yes (Hospitalization)
  Sender: FDA-Public Use
  Company Number: CA-PFIZER INC-2012310409

PATIENT
  Age: 35 Year
  Sex: Female
  Weight: 55 kg

DRUGS (1)
  1. SALAZOPYRIN [Suspect]
     Dosage: 500 mg, 4 every day
     Route: 048

REACTIONS (4)
  - Rash maculo-papular [Unknown]
  - Laryngotracheal oedema [Unknown]
  - Stomatitis [Unknown]
  - Stevens-Johnson syndrome [Unknown]
